FAERS Safety Report 9618678 (Version 1)
Quarter: 2013Q4

REPORT INFORMATION
  Report Type: Spontaneous
  Country: US (occurrence: US)
  Receive Date: 20131014
  Receipt Date: 20131014
  Transmission Date: 20140711
  Serious: No
  Sender: FDA-Public Use
  Company Number: US-PFIZER INC-2013293855

PATIENT
  Age: 64 Year
  Sex: Male
  Weight: 104 kg

DRUGS (6)
  1. LYRICA [Suspect]
     Indication: PAIN IN EXTREMITY
     Dosage: 100 MG, 3X/DAY
     Dates: start: 2013, end: 201309
  2. LYRICA [Suspect]
     Indication: FIBROMYALGIA
  3. TRAMADOL [Concomitant]
     Indication: DISCOMFORT
     Dosage: UNK, AS NEEDED
  4. LIPITOR [Concomitant]
     Indication: BLOOD CHOLESTEROL ABNORMAL
     Dosage: 40 MG, 1X/DAY
  5. ALDACTONE [Concomitant]
     Indication: FLUID RETENTION
     Dosage: 25 MG, 2X/DAY
  6. BUMEX [Concomitant]
     Indication: FLUID RETENTION
     Dosage: 1 MG, 1X/DAY

REACTIONS (1)
  - Pain [Not Recovered/Not Resolved]
